FAERS Safety Report 14851085 (Version 1)
Quarter: 2018Q2

REPORT INFORMATION
  Report Type: Report from Study
  Country: DK (occurrence: DK)
  Receive Date: 20180507
  Receipt Date: 20180507
  Transmission Date: 20180711
  Serious: Yes (Other)
  Sender: FDA-Public Use
  Company Number: DK-ROCHE-2117886

PATIENT
  Age: 63 Year
  Sex: Male

DRUGS (16)
  1. CYTOSINE ARABINOSIDE [Suspect]
     Active Substance: CYTARABINE
     Indication: NON-HODGKIN^S LYMPHOMA STAGE I
     Dosage: BEAM THERAPY
     Route: 065
  2. LOMUSTINE. [Suspect]
     Active Substance: LOMUSTINE
     Indication: NON-HODGKIN^S LYMPHOMA STAGE I
     Dosage: BEAM THERAPY
     Route: 065
  3. RITUXIMAB. [Suspect]
     Active Substance: RITUXIMAB
     Indication: NON-HODGKIN^S LYMPHOMA STAGE I
     Dosage: R-DHAP
     Route: 065
  4. DEXAMETHASONE. [Suspect]
     Active Substance: DEXAMETHASONE
     Indication: NON-HODGKIN^S LYMPHOMA STAGE I
     Route: 065
  5. CISPLATIN. [Suspect]
     Active Substance: CISPLATIN
     Indication: NON-HODGKIN^S LYMPHOMA STAGE I
     Dosage: R-DHAP
     Route: 065
  6. SENDOXAN [Suspect]
     Active Substance: CYCLOPHOSPHAMIDE
     Indication: NON-HODGKIN^S LYMPHOMA STAGE I
     Dosage: CHOP
     Route: 065
  7. SENDOXAN [Suspect]
     Active Substance: CYCLOPHOSPHAMIDE
     Dosage: CHOP
     Route: 065
  8. DOXORUBICIN [Suspect]
     Active Substance: DOXORUBICIN
     Dosage: CHOP THERAPY
     Route: 065
  9. CYTOSAR [Suspect]
     Active Substance: CYTARABINE
     Indication: NON-HODGKIN^S LYMPHOMA STAGE I
     Dosage: R-DHAP
     Route: 065
  10. PREDNISONE. [Suspect]
     Active Substance: PREDNISONE
     Indication: NON-HODGKIN^S LYMPHOMA STAGE I
     Dosage: CHOP THERAPY
     Route: 065
  11. VINCRISTINE [Suspect]
     Active Substance: VINCRISTINE
     Indication: NON-HODGKIN^S LYMPHOMA STAGE I
     Dosage: CHOP THERAPY
     Route: 065
  12. ETOPOSIDE. [Suspect]
     Active Substance: ETOPOSIDE
     Indication: NON-HODGKIN^S LYMPHOMA STAGE I
     Dosage: BEAM THERAPY
     Route: 065
  13. DOXORUBICIN [Suspect]
     Active Substance: DOXORUBICIN
     Indication: NON-HODGKIN^S LYMPHOMA STAGE I
     Dosage: CHOP THERAPY
     Route: 065
  14. VINCRISTINE [Suspect]
     Active Substance: VINCRISTINE
     Dosage: CHOP THERAPY
     Route: 065
  15. MELPHALAN. [Suspect]
     Active Substance: MELPHALAN
     Indication: NON-HODGKIN^S LYMPHOMA STAGE I
     Dosage: BEAM THERAPY
     Route: 065
  16. PREDNISONE. [Suspect]
     Active Substance: PREDNISONE
     Dosage: CHOP THERAPY
     Route: 065

REACTIONS (2)
  - Myelodysplastic syndrome [Unknown]
  - Acute myeloid leukaemia [Unknown]
